FAERS Safety Report 5512146-5 (Version None)
Quarter: 2007Q4

REPORT INFORMATION
  Report Type: 
  Country: None (occurrence: None)
  Receive Date: 20071112
  Receipt Date: 20071105
  Transmission Date: 20080405
  Serious: Yes (Life-Threatening)
  Sender: FDA-Public Use
  Company Number: JP-SHR-JP-2007-042140

PATIENT
  Age: 31 Year
  Sex: Female

DRUGS (1)
  1. MAGNEVIST [Suspect]
     Dosage: 10 ML, 1 DOSE
     Route: 042
     Dates: start: 20071101, end: 20071101

REACTIONS (6)
  - BLOOD PRESSURE DECREASED [None]
  - COUGH [None]
  - OCULAR HYPERAEMIA [None]
  - PHARYNGOLARYNGEAL DISCOMFORT [None]
  - SHOCK [None]
  - YAWNING [None]
